FAERS Safety Report 11120194 (Version 2)
Quarter: 2015Q2

REPORT INFORMATION
  Report Type: Spontaneous
  Country: US (occurrence: US)
  Receive Date: 20150518
  Receipt Date: 20150604
  Transmission Date: 20150821
  Serious: Yes (Other)
  Sender: FDA-Public Use
  Company Number: US-GLAXOSMITHKLINE-US2015GSK066501

PATIENT
  Sex: Female

DRUGS (1)
  1. ADVAIR DISKUS [Suspect]
     Active Substance: FLUTICASONE PROPIONATE\SALMETEROL XINAFOATE
     Indication: ASTHMA
     Dosage: UNK, U
     Route: 065

REACTIONS (7)
  - Fibromyalgia [Unknown]
  - Thrombosis [Not Recovered/Not Resolved]
  - Abasia [Not Recovered/Not Resolved]
  - Hypertension [Unknown]
  - Ill-defined disorder [Unknown]
  - Depression [Unknown]
  - Diabetes mellitus [Unknown]
